FAERS Safety Report 5552874-9 (Version None)
Quarter: 2007Q4

REPORT INFORMATION
  Report Type: 
  Country: None (occurrence: None)
  Receive Date: 20071210
  Receipt Date: 20071125
  Transmission Date: 20080405
  Serious: Yes (Hospitalization)
  Sender: FDA-Public Use
  Company Number: 2007S1012326

PATIENT
  Age: 27 Year
  Sex: Male

DRUGS (3)
  1. BLEOMYCIN [Suspect]
     Indication: SEMINOMA
     Dosage: 30 MG; NULL_1_DAY
  2. CISPLATIN [Suspect]
     Indication: SEMINOMA
     Dosage: 100 MG/M**2; NULL_1_DAY
  3. ETOPOSIDE [Suspect]
     Indication: SEMINOMA
     Dosage: 100 MG/M**2;NULL_1_DAY

REACTIONS (2)
  - ACUTE MYOCARDIAL INFARCTION [None]
  - INTRACARDIAC THROMBUS [None]
